FAERS Safety Report 9771838 (Version 1)
Quarter: 2013Q4

REPORT INFORMATION
  Report Type: Spontaneous
  Country: US (occurrence: US)
  Receive Date: 20131219
  Receipt Date: 20131219
  Transmission Date: 20140711
  Serious: No
  Sender: FDA-Public Use
  Company Number: US-JNJFOC-20131203558

PATIENT
  Sex: Female

DRUGS (5)
  1. DURAGESIC [Suspect]
     Indication: PAIN
     Route: 062
     Dates: start: 201303
  2. DURAGESIC [Suspect]
     Indication: PAIN
     Route: 062
  3. ULTRAM [Concomitant]
     Route: 048
  4. NUCYNTA [Concomitant]
     Route: 048
  5. NUCYNTA ER [Concomitant]
     Route: 048

REACTIONS (2)
  - Drug dose omission [Not Recovered/Not Resolved]
  - Product quality issue [Unknown]
